FAERS Safety Report 8893871 (Version 1)
Quarter: 2012Q4

REPORT INFORMATION
  Report Type: 
  Country: US (occurrence: US)
  Receive Date: 20121108
  Receipt Date: 20121108
  Transmission Date: 20130627
  Serious: No
  Sender: FDA-Public Use
  Company Number: US-PFIZER INC-2012271709

PATIENT
  Age: 65 Year
  Sex: Female
  Weight: 59.86 kg

DRUGS (8)
  1. PREMARIN VAGINAL CREAM [Suspect]
     Indication: VAGINAL DRYNESS
     Dosage: 0.5 mg, UNK
     Route: 067
  2. PREMARIN VAGINAL CREAM [Suspect]
     Indication: VAGINAL ITCHING
  3. PREMARIN VAGINAL CREAM [Suspect]
     Indication: VAGINAL BURNING SENSATION
  4. ZITHROMAX [Suspect]
     Indication: YEAST INFECTION
     Dosage: UNK
     Dates: start: 2012
  5. METHOTREXATE [Concomitant]
     Indication: SJOGREN^S SYNDROME
     Dosage: 50 mg, weekly
  6. METHOTREXATE [Concomitant]
     Indication: LUPUS ERYTHEMATOSUS
  7. PREDNISONE [Concomitant]
     Indication: SJOGREN^S SYNDROME
     Dosage: 5 mg, daily
  8. PREDNISONE [Concomitant]
     Indication: LUPUS ERYTHEMATOSUS

REACTIONS (4)
  - Fungal infection [Unknown]
  - Product quality issue [Unknown]
  - Influenza [Unknown]
  - Vulvovaginal burning sensation [Unknown]
